FAERS Safety Report 6833728-4 (Version None)
Quarter: 2010Q3

REPORT INFORMATION
  Report Type: 
  Country: None (occurrence: None)
  Receive Date: 20100712
  Receipt Date: 20070330
  Transmission Date: 20110219
  Serious: No
  Sender: FDA-Public Use
  Company Number: US-PFIZER INC-2007027386

PATIENT
  Sex: Female
  Weight: 113.4 kg

DRUGS (12)
  1. CHANTIX [Suspect]
     Indication: SMOKING CESSATION THERAPY
     Dates: start: 20070325
  2. ADVAIR DISKUS 100/50 [Concomitant]
  3. ALBUTEROL [Concomitant]
  4. NEXIUM [Concomitant]
  5. TRIAMTERENE [Concomitant]
  6. NIFEDICAL [Concomitant]
  7. SENNA [Concomitant]
  8. RISPERDAL [Concomitant]
  9. CLONAZEPAM [Concomitant]
  10. LAMICTAL [Concomitant]
  11. CYMBALTA [Concomitant]
  12. SIMVASTATIN [Concomitant]
     Indication: BLOOD CHOLESTEROL INCREASED

REACTIONS (3)
  - ABDOMINAL DISCOMFORT [None]
  - HEADACHE [None]
  - NAUSEA [None]
